FAERS Safety Report 26206989 (Version 2)
Quarter: 2025Q4

REPORT INFORMATION
  Report Type: Report from Study
  Country: CA (occurrence: CA)
  Receive Date: 20251229
  Receipt Date: 20251230
  Transmission Date: 20260118
  Serious: Yes (Hospitalization)
  Sender: BIOGEN
  Company Number: CA-BIOGEN-2096830

PATIENT
  Sex: Female

DRUGS (2)
  1. TYSABRI [Suspect]
     Active Substance: NATALIZUMAB
     Indication: Multiple sclerosis
     Dates: start: 20150506
  2. TYSABRI [Suspect]
     Active Substance: NATALIZUMAB
     Dates: start: 20150506

REACTIONS (2)
  - Chest pain [Unknown]
  - Heart rate irregular [Unknown]
